FAERS Safety Report 10702631 (Version 1)
Quarter: 2015Q1

REPORT INFORMATION
  Report Type: Spontaneous
  Country: US (occurrence: US)
  Receive Date: 20150109
  Receipt Date: 20150109
  Transmission Date: 20150721
  Serious: No
  Sender: FDA-Public Use
  Company Number: US-CELGENEUS-USA-2014111244

PATIENT
  Age: 68 Year
  Sex: Male

DRUGS (2)
  1. OTEZLA [Suspect]
     Active Substance: APREMILAST
     Indication: BLADDER CANCER
     Route: 048
     Dates: start: 20140725, end: 2014
  2. OTEZLA [Suspect]
     Active Substance: APREMILAST
     Route: 048
     Dates: start: 201408

REACTIONS (5)
  - Abdominal distension [Recovered/Resolved]
  - Faeces discoloured [Recovered/Resolved]
  - Abdominal pain upper [Recovered/Resolved]
  - Drug administration error [Recovered/Resolved]
  - Nausea [Recovered/Resolved]

NARRATIVE: CASE EVENT DATE: 20140801
